FAERS Safety Report 8332607-3 (Version None)
Quarter: 2012Q2

REPORT INFORMATION
  Report Type: 
  Country: None (occurrence: None)
  Receive Date: 20120503
  Receipt Date: 20120423
  Transmission Date: 20120825
  Serious: Yes (Hospitalization)
  Sender: FDA-Public Use
  Company Number: US-SANOFI-AVENTIS-2012SA028039

PATIENT
  Sex: Male

DRUGS (3)
  1. LANTUS [Suspect]
     Dosage: DOSE:5 UNIT(S)
     Route: 058
  2. LANTUS [Suspect]
     Dosage: DOSE:10 UNIT(S)
     Route: 058
     Dates: start: 20110101
  3. SOLOSTAR [Suspect]
     Dates: start: 20110101

REACTIONS (2)
  - PNEUMONIA [None]
  - DIABETES MELLITUS INADEQUATE CONTROL [None]
